FAERS Safety Report 16171673 (Version 1)
Quarter: 2019Q2

REPORT INFORMATION
  Report Type: Spontaneous
  Country: US (occurrence: US)
  Receive Date: 20190408
  Receipt Date: 20190408
  Transmission Date: 20190711
  Serious: No
  Sender: FDA-Public Use
  Company Number: US-PFIZER INC-2019145237

PATIENT
  Age: 72 Year
  Sex: Female

DRUGS (8)
  1. GABAPENTIN. [Suspect]
     Active Substance: GABAPENTIN
     Dosage: UNK UNK, 1X/DAY (INCREASED TO 2-3 CAPSULES AT BEDTIME)
     Dates: start: 201902
  2. JAKAFI [Concomitant]
     Active Substance: RUXOLITINIB
     Indication: MYELOFIBROSIS
     Dosage: 7.5 MG, 2X/DAY (HALF A TABLET, BID (TWO TIME A DAY) (AM AND PM)
     Route: 048
     Dates: start: 201811
  3. JAKAFI [Concomitant]
     Active Substance: RUXOLITINIB
     Dosage: 15 MG, 2X/DAY
     Route: 048
     Dates: start: 201902
  4. ATORVASTATIN CALCIUM. [Concomitant]
     Active Substance: ATORVASTATIN CALCIUM
     Dosage: UNK
  5. METOPROLOL SUCCINATE. [Concomitant]
     Active Substance: METOPROLOL SUCCINATE
     Dosage: UNK
  6. GABAPENTIN. [Suspect]
     Active Substance: GABAPENTIN
     Indication: NEURALGIA
     Dosage: 100 MG, 1X/DAY (QHS FOR 3 DAYS)
  7. HYDROCHLOROTHIAZIDE. [Concomitant]
     Active Substance: HYDROCHLOROTHIAZIDE
     Dosage: UNK
  8. ALLOCOR [ALLOPURINOL] [Concomitant]
     Dosage: UNK

REACTIONS (2)
  - Gastric disorder [Unknown]
  - Product use in unapproved indication [Unknown]
